FAERS Safety Report 25758312 (Version 3)
Quarter: 2025Q4

REPORT INFORMATION
  Report Type: Report from Study
  Country: EU (occurrence: EU)
  Receive Date: 20250904
  Receipt Date: 20251003
  Transmission Date: 20260118
  Serious: Yes (Hospitalization, Other)
  Sender: ABBVIE
  Company Number: EU-ABBVIE-6442844

PATIENT
  Age: 73 Year
  Sex: Female

DRUGS (3)
  1. ELAHERE [Suspect]
     Active Substance: MIRVETUXIMAB SORAVTANSINE-GYNX
     Indication: Product used for unknown indication
     Dosage: 1-4 CYCLE
     Route: 042
  2. ELAHERE [Suspect]
     Active Substance: MIRVETUXIMAB SORAVTANSINE-GYNX
     Indication: Product used for unknown indication
     Dosage: 5 CYCLE
     Route: 042
     Dates: start: 20250423
  3. CORTISONE [Concomitant]
     Active Substance: CORTISONE
     Indication: Corneal disorder

REACTIONS (11)
  - Cytomegalovirus chorioretinitis [Unknown]
  - Liver function test increased [Unknown]
  - Visual impairment [Unknown]
  - Corneal epithelial microcysts [Unknown]
  - Cataract nuclear [Unknown]
  - Breast abscess [Unknown]
  - Genital abscess [Unknown]
  - Bone abscess [Unknown]
  - Localised infection [Unknown]
  - Colitis [Unknown]
  - Parotitis [Unknown]

NARRATIVE: CASE EVENT DATE: 20250829
